FAERS Safety Report 9642798 (Version 1)
Quarter: 2013Q4

REPORT INFORMATION
  Report Type: Spontaneous
  Country: BR (occurrence: BR)
  Receive Date: 20131024
  Receipt Date: 20131024
  Transmission Date: 20140711
  Serious: Yes (Hospitalization)
  Sender: FDA-Public Use
  Company Number: BR-SANOFI-AVENTIS-2013SA078294

PATIENT
  Age: 73 Year
  Sex: Female
  Weight: 110 kg

DRUGS (11)
  1. LANTUS [Suspect]
     Indication: TYPE 1 DIABETES MELLITUS
     Route: 058
     Dates: start: 2005
  2. APIDRA SOLOSTAR [Suspect]
     Indication: TYPE 1 DIABETES MELLITUS
     Dosage: 4 IU AT MORNING, 14IU AT LUNCH, 14 IU AT DINNER
     Route: 058
     Dates: start: 2013
  3. SOLOSTAR [Concomitant]
     Dates: start: 2013
  4. CLIKSTAR [Concomitant]
     Indication: DEVICE THERAPY
  5. JANUMET [Concomitant]
     Indication: TYPE 1 DIABETES MELLITUS
     Route: 048
     Dates: start: 2003
  6. PURAN T4 [Concomitant]
     Indication: THYROID DISORDER
     Dosage: 1 TABLET DAILY IN FASTING
     Route: 048
     Dates: start: 2003
  7. ROSUVASTATIN CALCIUM [Concomitant]
     Indication: BLOOD CHOLESTEROL
     Route: 048
     Dates: start: 2003
  8. LASIX [Concomitant]
     Indication: POLYURIA
     Route: 048
     Dates: start: 2003
  9. AAS [Concomitant]
     Indication: ANTICOAGULANT THERAPY
     Route: 048
     Dates: start: 2003
  10. ZYLORIC [Concomitant]
     Indication: RENAL DISORDER
     Route: 048
     Dates: start: 2003
  11. LOSARTAN [Concomitant]
     Indication: BLOOD PRESSURE
     Route: 048

REACTIONS (5)
  - Diabetic neuropathy [Recovering/Resolving]
  - Condition aggravated [Unknown]
  - Pain [Recovering/Resolving]
  - Swelling [Recovering/Resolving]
  - Musculoskeletal disorder [Recovering/Resolving]
